FAERS Safety Report 10722636 (Version 4)
Quarter: 2015Q2

REPORT INFORMATION
  Report Type: Spontaneous
  Country: JP (occurrence: JP)
  Receive Date: 20150120
  Receipt Date: 20150602
  Transmission Date: 20150821
  Serious: Yes (Death, Hospitalization, Other)
  Sender: FDA-Public Use
  Company Number: JP-GLAXOSMITHKLINE-JP2015JPN004769

PATIENT
  Age: 66 Year
  Sex: Male
  Weight: 57 kg

DRUGS (2)
  1. LAMICTAL [Suspect]
     Active Substance: LAMOTRIGINE
     Indication: EPILEPSY
     Dosage: 25 MG, QOD
     Route: 048
     Dates: start: 20140912, end: 20140925
  2. DEPAKENE [Concomitant]
     Active Substance: VALPROIC ACID
     Dosage: 400 MG, BID

REACTIONS (8)
  - Fall [Unknown]
  - Subdural haematoma [Fatal]
  - Drug eruption [Recovering/Resolving]
  - Hepatic function abnormal [Unknown]
  - Respiratory disorder [Unknown]
  - Rash [Unknown]
  - Pyrexia [Recovering/Resolving]
  - Depressed level of consciousness [Unknown]

NARRATIVE: CASE EVENT DATE: 20140925
